FAERS Safety Report 7363795-3 (Version None)
Quarter: 2011Q1

REPORT INFORMATION
  Report Type: 
  Country: None (occurrence: None)
  Receive Date: 20110321
  Receipt Date: 20110314
  Transmission Date: 20110831
  Serious: Yes (Hospitalization, Other)
  Sender: FDA-Public Use
  Company Number: GR-PFIZER INC-2011055772

PATIENT
  Age: 27 Year
  Sex: Male

DRUGS (1)
  1. VENLAFAXINE HCL [Suspect]
     Dosage: 6.3 G IN ONE DAY (OVERDOSE AMOUNT)

REACTIONS (6)
  - INTENTIONAL OVERDOSE [None]
  - SHOCK [None]
  - TACHYCARDIA [None]
  - EOSINOPHILIC PNEUMONIA ACUTE [None]
  - CONVULSION [None]
  - AGITATION [None]
